FAERS Safety Report 8018293-0 (Version None)
Quarter: 2012Q1

REPORT INFORMATION
  Report Type: 
  Country: None (occurrence: None)
  Receive Date: 20120103
  Receipt Date: 20111222
  Transmission Date: 20120608
  Serious: Yes (Hospitalization)
  Sender: FDA-Public Use
  Company Number: US-BAYER-2011-065141

PATIENT
  Age: 29 Year
  Sex: Female
  Weight: 60.771 kg

DRUGS (10)
  1. YAZ [Suspect]
     Indication: ACNE
  2. YAZ [Suspect]
     Indication: PREMENSTRUAL SYNDROME
  3. NIZATIDINE [Concomitant]
  4. YAZ [Suspect]
     Indication: IRON DEFICIENCY
  5. LORAZEPAM [Concomitant]
     Dosage: 1 MG, UNK
  6. YAZ [Suspect]
     Indication: CONTRACEPTION
     Dosage: UNK
     Dates: start: 20071005, end: 20091015
  7. ESTAZOLAM [Concomitant]
     Indication: INSOMNIA
     Dosage: 2 MG, UNK
     Route: 048
     Dates: start: 20090701, end: 20090901
  8. CLONAZEPAM [Concomitant]
     Indication: PANIC ATTACK
     Dosage: UNK UNK, QD
     Route: 048
     Dates: start: 20080201
  9. PEXEVA [Concomitant]
     Indication: DEPRESSION
     Dosage: 20 MG, QD
     Route: 048
     Dates: start: 20090501, end: 20090701
  10. TEMAZEPAM [Concomitant]
     Indication: INSOMNIA
     Dosage: 30 MG, UNK
     Dates: start: 20090401, end: 20090701

REACTIONS (4)
  - GALLBLADDER DISORDER [None]
  - CONSTIPATION [None]
  - DISCOMFORT [None]
  - CHOLECYSTITIS CHRONIC [None]
